FAERS Safety Report 8495041 (Version 12)
Quarter: 2014Q2

REPORT INFORMATION
  Report Type: Spontaneous
  Country: GB (occurrence: GB)
  Receive Date: 20120405
  Receipt Date: 20140506
  Transmission Date: 20141212
  Serious: Yes (Life-Threatening, Hospitalization, Other)
  Sender: FDA-Public Use
  Company Number: PHFR2012GB002039

PATIENT
  Age: 62 Year
  Sex: Male

DRUGS (2)
  1. CLOZARIL [Suspect]
     Indication: DELUSIONAL DISORDER, UNSPECIFIED TYPE
     Dosage: 400 MG, UNK
     Route: 048
     Dates: start: 20031030, end: 201209
  2. AMITRIPTYLINE [Concomitant]
     Indication: SLEEP DISORDER
     Dosage: 25 MG, UNK
     Route: 048
     Dates: start: 200310

REACTIONS (11)
  - Burkitt^s lymphoma [Recovering/Resolving]
  - Non-Hodgkin^s lymphoma [Recovering/Resolving]
  - Body temperature increased [Unknown]
  - Neutrophil count increased [Recovered/Resolved]
  - Neutropenia [Recovered/Resolved]
  - White blood cell count increased [Recovered/Resolved]
  - White blood cell count decreased [Recovered/Resolved]
  - Platelet count decreased [Recovered/Resolved]
  - Blood prolactin increased [Unknown]
  - Blood creatine phosphokinase increased [Unknown]
  - Haemoglobin decreased [Unknown]
